FAERS Safety Report 9670197 (Version 2)
Quarter: 2013Q4

REPORT INFORMATION
  Report Type: Spontaneous
  Country: US (occurrence: None)
  Receive Date: 20131104
  Receipt Date: 20131203
  Transmission Date: 20140711
  Serious: Yes (Other)
  Sender: FDA-Public Use
  Company Number: AUR-APL-2013-09169

PATIENT
  Sex: Female
  Weight: 78.47 kg

DRUGS (6)
  1. ALENDRONIC ACID (ALENDRONIC ACID) [Suspect]
     Indication: OSTEOPOROSIS
     Route: 048
  2. ATENOLOL (ATENOLOL) [Concomitant]
  3. LEVOTHYROXINE (LEVOTHYROXINE) [Concomitant]
  4. MVI (VITAMINS NOS) [Concomitant]
  5. VITAMIN C (CALCIUM ASCORBATE) [Concomitant]
  6. XANAX (ALPRAZOLAM) [Concomitant]

REACTIONS (6)
  - Fatigue [None]
  - Asthenia [None]
  - Back pain [None]
  - Arthralgia [None]
  - Diverticulum [None]
  - Condition aggravated [None]
